FAERS Safety Report 24856253 (Version 5)
Quarter: 2025Q3

REPORT INFORMATION
  Report Type: Report from Study
  Country: CN (occurrence: CN)
  Receive Date: 20250117
  Receipt Date: 20250718
  Transmission Date: 20251021
  Serious: Yes (Death, Hospitalization, Other)
  Sender: Vantive US Healthcare
  Company Number: CN-VANTIVE-2025VAN000164

PATIENT
  Age: 69 Year
  Sex: Male
  Weight: 55 kg

DRUGS (8)
  1. EXTRANEAL [Suspect]
     Active Substance: CALCIUM CHLORIDE\ICODEXTRIN\MAGNESIUM CHLORIDE\SODIUM CHLORIDE\SODIUM LACTATE
     Indication: Chronic kidney disease
     Route: 033
     Dates: start: 20241104, end: 20250114
  2. CALCIUM CHLORIDE\DEXTROSE\MAGNESIUM CHLORIDE\SODIUM CHLORIDE\SODIUM LA [Suspect]
     Active Substance: CALCIUM CHLORIDE\DEXTROSE\MAGNESIUM CHLORIDE\SODIUM CHLORIDE\SODIUM LACTATE
     Indication: Chronic kidney disease
     Route: 033
     Dates: start: 20241104, end: 20250114
  3. CALCIUM CHLORIDE\DEXTROSE\MAGNESIUM CHLORIDE\SODIUM CHLORIDE\SODIUM LA [Suspect]
     Active Substance: CALCIUM CHLORIDE\DEXTROSE\MAGNESIUM CHLORIDE\SODIUM CHLORIDE\SODIUM LACTATE
     Indication: Chronic kidney disease
     Route: 033
     Dates: start: 20241104, end: 20250114
  4. UNSPECIFIED INGREDIENT [Suspect]
     Active Substance: UNSPECIFIED INGREDIENT
     Route: 065
  5. CINACALCET HYDROCHLORIDE [Concomitant]
     Active Substance: CINACALCET HYDROCHLORIDE
     Indication: Hyperparathyroidism secondary
     Route: 048
     Dates: start: 2021
  6. ATORVASTATIN CALCIUM [Concomitant]
     Active Substance: ATORVASTATIN CALCIUM
     Indication: Hyperlipidaemia
     Route: 048
     Dates: start: 20240715
  7. POTASSIUM CHLORIDE [Concomitant]
     Active Substance: POTASSIUM CHLORIDE
     Indication: Hypokalaemia
     Route: 048
     Dates: start: 20240715
  8. POTASSIUM CHLORIDE [Concomitant]
     Active Substance: POTASSIUM CHLORIDE
     Indication: Mineral supplementation

REACTIONS (15)
  - Death [Fatal]
  - Encephalopathy [Recovering/Resolving]
  - Loss of consciousness [Unknown]
  - Pneumonia [Unknown]
  - Cough [Unknown]
  - Productive cough [Unknown]
  - Sepsis [Not Recovered/Not Resolved]
  - Dyspnoea [Unknown]
  - Loss of consciousness [Recovering/Resolving]
  - Inflammation [Unknown]
  - Inflammatory marker increased [Unknown]
  - Unevaluable event [Unknown]
  - Decubitus ulcer [Unknown]
  - Infected skin ulcer [Unknown]
  - Decreased activity [Unknown]

NARRATIVE: CASE EVENT DATE: 20241231
